FAERS Safety Report 4302778-4 (Version None)
Quarter: 2004Q1

REPORT INFORMATION
  Report Type: 
  Country: None (occurrence: None)
  Receive Date: 20040224
  Receipt Date: 20031215
  Transmission Date: 20041129
  Serious: Yes (Hospitalization)
  Sender: FDA-Public Use
  Company Number: PHNU2003DE04410

PATIENT
  Age: 73 Year
  Sex: Female

DRUGS (2)
  1. VOLTAREN [Suspect]
     Indication: ARTHROPATHY
     Route: 048
  2. MARCUMAR [Concomitant]

REACTIONS (2)
  - AMNESIA [None]
  - DISORIENTATION [None]
